FAERS Safety Report 4507230-9 (Version None)
Quarter: 2004Q4

REPORT INFORMATION
  Report Type: 
  Country: None (occurrence: None)
  Receive Date: 20041115
  Receipt Date: 20041029
  Transmission Date: 20050328
  Serious: Yes (Death, Hospitalization)
  Sender: FDA-Public Use
  Company Number: 239318

PATIENT
  Age: 63 Year
  Sex: Male
  Weight: 63 kg

DRUGS (12)
  1. NIASTASE (EPTACOG ALFA (ACTIVATED)) POWDER FOR INJECTION [Suspect]
     Indication: AORTIC ANEURYSM RUPTURE
     Dosage: SEE IMAGE
     Route: 042
     Dates: start: 20040726, end: 20040727
  2. NIASTASE (EPTACOG ALFA (ACTIVATED)) POWDER FOR INJECTION [Suspect]
     Indication: AORTIC ANEURYSM RUPTURE
     Dosage: SEE IMAGE
     Route: 042
     Dates: start: 20040727, end: 20040727
  3. NIASTASE (EPTACOG ALFA (ACTIVATED)) POWDER FOR INJECTION [Suspect]
  4. FENTANYL [Concomitant]
  5. PROPOFOL [Concomitant]
  6. NITRO (GLYCERYL TRINITRATE) [Concomitant]
  7. PENTASPAN (HETASTARCH) [Concomitant]
  8. ATIVAN [Concomitant]
  9. PANTOLOC ^BYK GUOLDEN^ (PANTOPRAZOLE SODIUM) [Concomitant]
  10. PHENYLEPHRINE (PHENYLEPHRINE) [Concomitant]
  11. LEVOPHED [Concomitant]
  12. CALCIUM CHLORATE (CALCIUM CHLORATE) [Concomitant]

REACTIONS (9)
  - ACUTE MYOCARDIAL INFARCTION [None]
  - BRADYCARDIA [None]
  - CARDIAC ARREST [None]
  - CARDIAC OUTPUT DECREASED [None]
  - ELECTROMECHANICAL DISSOCIATION [None]
  - HAEMORRHAGE [None]
  - HYPOTENSION [None]
  - POST PROCEDURAL COMPLICATION [None]
  - SEPSIS [None]
